FAERS Safety Report 17075915 (Version 2)
Quarter: 2019Q4

REPORT INFORMATION
  Report Type: Spontaneous
  Country: US (occurrence: US)
  Receive Date: 20191126
  Receipt Date: 20191127
  Transmission Date: 20200122
  Serious: No
  Sender: FDA-Public Use
  Company Number: US-GILEAD-2019-0439253

PATIENT
  Age: 5 Year
  Sex: Female
  Weight: 14.97 kg

DRUGS (4)
  1. TADALAFIL. [Concomitant]
     Active Substance: TADALAFIL
  2. REMODULIN [Suspect]
     Active Substance: TREPROSTINIL
     Indication: PULMONARY HYPERTENSION
     Dosage: 83 NANOGRAM PER KILOGRAM, Q1MINUTE
     Route: 058
     Dates: start: 20170724
  3. AMBRISENTAN [Suspect]
     Active Substance: AMBRISENTAN
     Indication: TRANSPOSITION OF THE GREAT VESSELS
  4. AMBRISENTAN [Suspect]
     Active Substance: AMBRISENTAN
     Indication: PULMONARY HYPERTENSION
     Dosage: UNK
     Route: 065

REACTIONS (1)
  - Wrong technique in product usage process [Recovered/Resolved]
